FAERS Safety Report 9006002 (Version 1)
Quarter: 2013Q1

REPORT INFORMATION
  Report Type: Spontaneous
  Country: US (occurrence: US)
  Receive Date: 20130109
  Receipt Date: 20130109
  Transmission Date: 20140127
  Serious: No
  Sender: FDA-Public Use
  Company Number: US-PFIZER INC-2004057525

PATIENT
  Age: 74 Year
  Sex: Female

DRUGS (2)
  1. MOTRIN IB [Suspect]
     Indication: ARTHRITIS
     Dosage: 200 MG, DAILY
     Route: 048
     Dates: start: 20040330, end: 20040402
  2. TROLAMINE SALICYLATE [Concomitant]
     Indication: ARTHRALGIA
     Dosage: UNK

REACTIONS (2)
  - Pain [Unknown]
  - Condition aggravated [Unknown]
